FAERS Safety Report 8402837-0 (Version None)
Quarter: 2012Q2

REPORT INFORMATION
  Report Type: 
  Country: None (occurrence: None)
  Receive Date: 20120323
  Receipt Date: 20110519
  Transmission Date: 20120825
  Serious: Yes (Other)
  Sender: FDA-Public Use
  Company Number: 163-21880-11032852

PATIENT
  Age: 74 Year
  Sex: Male
  Weight: 84.8226 kg

DRUGS (16)
  1. FLUIDS (I.V. SOLUTIONS) [Concomitant]
  2. ASPIRIN [Concomitant]
  3. ZOFRAN [Concomitant]
  4. ACTONEL [Concomitant]
  5. INSULIN [Concomitant]
  6. DEXAMETHASONE [Concomitant]
  7. CRESTOR [Concomitant]
  8. PRINZIDE [Concomitant]
  9. ISORDIL [Concomitant]
  10. LOPRESSOR (METOROLOL TARTRATE) [Concomitant]
  11. CALCIUM PLUS VITAMIN D (CALCIUM D 3 ^STADA^) [Concomitant]
  12. REVLIMID [Suspect]
     Indication: MULTIPLE MYELOMA
     Dosage: 25 MG, 1 IN 1 D, PO; 15-10-5MG, DAILY, PO; 15 MG, DAILY 21 DAYS, PO
     Route: 048
     Dates: start: 20070901, end: 20080101
  13. REVLIMID [Suspect]
     Indication: MULTIPLE MYELOMA
     Dosage: 25 MG, 1 IN 1 D, PO; 15-10-5MG, DAILY, PO; 15 MG, DAILY 21 DAYS, PO
     Route: 048
     Dates: start: 20070601, end: 20070101
  14. REVLIMID [Suspect]
     Indication: MULTIPLE MYELOMA
     Dosage: 25 MG, 1 IN 1 D, PO; 15-10-5MG, DAILY, PO; 15 MG, DAILY 21 DAYS, PO
     Route: 048
     Dates: start: 20110223, end: 20110309
  15. SYNTHROID [Concomitant]
  16. ACYCLOVIR [Concomitant]

REACTIONS (6)
  - RENAL FAILURE [None]
  - HYPERGLYCAEMIA [None]
  - NEOPLASM PROGRESSION [None]
  - CONDITION AGGRAVATED [None]
  - ANAEMIA [None]
  - MULTIPLE MYELOMA [None]
